FAERS Safety Report 4506229-6 (Version None)
Quarter: 2004Q4

REPORT INFORMATION
  Report Type: 
  Country: None (occurrence: None)
  Receive Date: 20041025
  Receipt Date: 20040115
  Transmission Date: 20050328
  Serious: Yes (Other)
  Sender: FDA-Public Use
  Company Number: US-JNJFOC-20031001449

PATIENT
  Age: 88 Year
  Sex: Male
  Weight: 70.3075 kg

DRUGS (1)
  1. REMICADE [Suspect]
     Indication: RHEUMATOID ARTHRITIS
     Dosage: , 1 IN 1 DAY,  INTRAVENOUS
     Route: 042

REACTIONS (2)
  - BLOOD PRESSURE INCREASED [None]
  - MALAISE [None]
